FAERS Safety Report 5860323-6 (Version None)
Quarter: 2008Q3

REPORT INFORMATION
  Report Type: 
  Country: None (occurrence: None)
  Receive Date: 20080827
  Receipt Date: 20070730
  Transmission Date: 20090109
  Serious: No
  Sender: FDA-Public Use
  Company Number: US-ABBOTT-07P-163-0376115-00

PATIENT
  Sex: Male
  Weight: 103.5 kg

DRUGS (3)
  1. COATED PDS [Suspect]
     Indication: BLOOD CHOLESTEROL INCREASED
     Dosage: ONE TABLET DAILY (ORANGE COATED)
     Route: 048
     Dates: start: 20070726
  2. OLMESARTAN MEDOXOMIL [Concomitant]
     Indication: HYPERTENSION
     Route: 048
  3. SIMVASTATIN [Concomitant]
     Indication: BLOOD CHOLESTEROL INCREASED
     Route: 048

REACTIONS (2)
  - DEPRESSION [None]
  - FLUSHING [None]
